FAERS Safety Report 16844985 (Version 2)
Quarter: 2019Q4

REPORT INFORMATION
  Report Type: Spontaneous
  Country: US (occurrence: US)
  Receive Date: 20190924
  Receipt Date: 20191025
  Transmission Date: 20200122
  Serious: No
  Sender: FDA-Public Use
  Company Number: US-PFIZER INC-2019409197

PATIENT
  Age: 67 Year
  Sex: Male
  Weight: 94.79 kg

DRUGS (1)
  1. LYRICA [Suspect]
     Active Substance: PREGABALIN
     Dosage: 50 MG, 3X/DAY, ((8 AM, 5 PM, BEDTIME), (1 LYRICA (WHITE/BLACK OBLONG CAPSULE) [PGN 50]))

REACTIONS (1)
  - Peripheral swelling [Unknown]
